FAERS Safety Report 15337345 (Version 1)
Quarter: 2018Q3

REPORT INFORMATION
  Report Type: Report from Study
  Country: None (occurrence: BR)
  Receive Date: 20180831
  Receipt Date: 20180831
  Transmission Date: 20181010
  Serious: Yes (Other)
  Sender: FDA-Public Use
  Company Number: BR-ABBVIE-18K-020-2461668-00

PATIENT
  Age: 46 Year
  Sex: Female
  Weight: 74 kg

DRUGS (5)
  1. PREDNISONE. [Concomitant]
     Active Substance: PREDNISONE
     Indication: PAIN IN EXTREMITY
  2. METHOTREXATE. [Concomitant]
     Active Substance: METHOTREXATE
     Indication: PAIN IN EXTREMITY
  3. HUMIRA [Suspect]
     Active Substance: ADALIMUMAB
     Indication: RHEUMATOID ARTHRITIS
     Route: 058
     Dates: start: 20150831
  4. PREDNISONE. [Concomitant]
     Active Substance: PREDNISONE
     Indication: PAIN IN EXTREMITY
  5. METHOTREXATE. [Concomitant]
     Active Substance: METHOTREXATE
     Indication: PAIN IN EXTREMITY

REACTIONS (14)
  - Abdominal distension [Recovering/Resolving]
  - Vulvovaginal swelling [Unknown]
  - Swelling [Recovering/Resolving]
  - Stress [Not Recovered/Not Resolved]
  - Leiomyoma [Recovering/Resolving]
  - Weight increased [Recovering/Resolving]
  - Anger [Not Recovered/Not Resolved]
  - Nervousness [Not Recovered/Not Resolved]
  - Anaemia [Recovering/Resolving]
  - Haemorrhage [Recovering/Resolving]
  - Sneezing [Unknown]
  - Hypersensitivity [Unknown]
  - Somnolence [Recovering/Resolving]
  - Unevaluable event [Unknown]

NARRATIVE: CASE EVENT DATE: 2018
